FAERS Safety Report 4958285-9 (Version None)
Quarter: 2006Q1

REPORT INFORMATION
  Report Type: 
  Country: None (occurrence: None)
  Receive Date: 20060330
  Receipt Date: 20060323
  Transmission Date: 20060701
  Serious: Yes (Other)
  Sender: FDA-Public Use
  Company Number: AU-AVENTIS-200612959GDDC

PATIENT
  Age: 81 Year
  Sex: Female

DRUGS (8)
  1. ARAVA [Suspect]
     Indication: RHEUMATOID ARTHRITIS
     Route: 048
     Dates: start: 20040913
  2. ASASANTIN [Concomitant]
     Indication: TRANSIENT ISCHAEMIC ATTACK
     Dosage: DOSE: UNK
  3. FELODUR [Concomitant]
     Dosage: DOSE: UNK
  4. MINAX [Concomitant]
     Dosage: DOSE: UNK
  5. ACIMAX [Concomitant]
     Dosage: DOSE: UNK
  6. PREDNISONE [Concomitant]
     Dosage: DOSE: UNK
  7. IRON SUPPLEMENT [Concomitant]
     Dosage: DOSE: UNK
  8. VITAMIN D [Concomitant]
     Dosage: DOSE: UNK

REACTIONS (1)
  - TRANSIENT ISCHAEMIC ATTACK [None]
